FAERS Safety Report 8514244-0 (Version None)
Quarter: 2012Q3

REPORT INFORMATION
  Report Type: 
  Country: None (occurrence: None)
  Receive Date: 20120717
  Receipt Date: 20120706
  Transmission Date: 20120928
  Serious: Yes (Death)
  Sender: FDA-Public Use
  Company Number: GB-SANOFI-AVENTIS-2012SA048565

PATIENT
  Age: 67 Year
  Sex: Female

DRUGS (8)
  1. RAMIPRIL [Concomitant]
  2. METFORMIN HYDROCHLORIDE [Concomitant]
  3. AMLODIPINE [Concomitant]
  4. SITAGLIPTIN PHOSPHATE [Concomitant]
  5. DRONEDARONE HCL [Suspect]
     Dates: start: 20120307
  6. WARFARIN SODIUM [Concomitant]
  7. NEO-MERCAZOLE TAB [Concomitant]
  8. BICALUTAMIDE [Concomitant]

REACTIONS (1)
  - DEATH [None]
